FAERS Safety Report 6800662-5 (Version None)
Quarter: 2010Q2

REPORT INFORMATION
  Report Type: 
  Country: None (occurrence: None)
  Receive Date: 20100629
  Receipt Date: 20100616
  Transmission Date: 20101027
  Serious: No
  Sender: FDA-Public Use
  Company Number: US-B.I. PHARMACEUTICALS,INC./RIDGEFIELD-2010-BP-06913BP

PATIENT
  Sex: Male

DRUGS (17)
  1. SPIRIVA [Suspect]
     Indication: CHRONIC OBSTRUCTIVE PULMONARY DISEASE
     Dosage: 18 MCG
     Route: 055
     Dates: start: 20100602
  2. SPIRIVA [Suspect]
     Indication: ASTHMA
  3. SPIRIVA [Suspect]
     Indication: SLEEP APNOEA SYNDROME
  4. ADVAIR DISKUS 100/50 [Suspect]
     Indication: CHRONIC OBSTRUCTIVE PULMONARY DISEASE
     Route: 055
     Dates: start: 20100602, end: 20100610
  5. ADVAIR DISKUS 100/50 [Suspect]
     Indication: ASTHMA
  6. ADVAIR DISKUS 100/50 [Suspect]
     Indication: SLEEP APNOEA SYNDROME
  7. AMLODIPINE [Concomitant]
     Indication: HYPERTENSION
     Dosage: 5 MG
  8. DIOVAN HCT [Concomitant]
     Indication: HYPERTENSION
  9. CRESTOR [Concomitant]
     Indication: BLOOD CHOLESTEROL INCREASED
     Dosage: 5 MG
  10. ASPIRIN [Concomitant]
     Indication: CARDIOVASCULAR EVENT PROPHYLAXIS
     Dosage: 81 MG
  11. LEVOTHYROXINE SODIUM [Concomitant]
     Indication: THYROID DISORDER
  12. FLUTICASONE [Concomitant]
     Indication: HYPERSENSITIVITY
     Route: 045
  13. CO Q10 [Concomitant]
     Indication: CARDIOVASCULAR EVENT PROPHYLAXIS
     Route: 048
  14. LORATADINE [Concomitant]
     Indication: HYPERSENSITIVITY
     Route: 048
  15. MULTI-VITAMIN [Concomitant]
     Indication: ROUTINE HEALTH MAINTENANCE
     Route: 048
  16. TYLENOL [Concomitant]
     Indication: ARTHRALGIA
     Route: 048
  17. VITAMIN D [Concomitant]

REACTIONS (4)
  - BACK PAIN [None]
  - HEAD DISCOMFORT [None]
  - HEADACHE [None]
  - MUSCULOSKELETAL PAIN [None]
